FAERS Safety Report 21264068 (Version 4)
Quarter: 2022Q4

REPORT INFORMATION
  Report Type: Spontaneous
  Country: RU (occurrence: RU)
  Receive Date: 20220829
  Receipt Date: 20221107
  Transmission Date: 20230113
  Serious: Yes (Other)
  Sender: FDA-Public Use
  Company Number: RU-NOVOPROD-951068

PATIENT
  Age: 64 Year
  Sex: Male
  Weight: 125 kg

DRUGS (2)
  1. OZEMPIC [Suspect]
     Active Substance: SEMAGLUTIDE
     Indication: Obesity
     Dosage: 1 MG, QW
     Route: 058
     Dates: start: 202112, end: 202207
  2. GLUCOPHAGE [Concomitant]
     Active Substance: METFORMIN HYDROCHLORIDE
     Indication: Obesity
     Dosage: 1000 MG, BID
     Route: 048

REACTIONS (5)
  - Acinar cell carcinoma of pancreas [Not Recovered/Not Resolved]
  - Metastases to lymph nodes [Unknown]
  - Metastases to liver [Unknown]
  - Pulmonary granuloma [Unknown]
  - Product use in unapproved indication [Unknown]

NARRATIVE: CASE EVENT DATE: 20220701
